FAERS Safety Report 7454338-4 (Version None)
Quarter: 2011Q2

REPORT INFORMATION
  Report Type: 
  Country: None (occurrence: None)
  Receive Date: 20110503
  Receipt Date: 20110419
  Transmission Date: 20111010
  Serious: Yes (Other)
  Sender: FDA-Public Use
  Company Number: AU-JNJFOC-20110401177

PATIENT
  Age: 42 Year
  Sex: Female

DRUGS (1)
  1. TOPAMAX [Suspect]
     Indication: AFFECTIVE DISORDER
     Route: 065

REACTIONS (2)
  - FIBROMYALGIA [None]
  - HEPATIC FUNCTION ABNORMAL [None]
